FAERS Safety Report 4611538-6 (Version None)
Quarter: 2005Q1

REPORT INFORMATION
  Report Type: 
  Country: None (occurrence: None)
  Receive Date: 20050316
  Receipt Date: 20050316
  Transmission Date: 20050727
  Serious: No
  Sender: FDA-Public Use
  Company Number: None

PATIENT
  Age: 74 Year
  Sex: Female

DRUGS (2)
  1. DOXEPIN  100 MG AND 150 MG [Suspect]
     Indication: SLEEP DISORDER THERAPY
     Dosage: ONE AT BEDTIME
     Dates: start: 20050127, end: 20050315
  2. DOXEPIN 100 MG AND 150 MG [Suspect]

REACTIONS (2)
  - DRUG INEFFECTIVE [None]
  - PHARMACEUTICAL PRODUCT COMPLAINT [None]
